FAERS Safety Report 6389946-5 (Version None)
Quarter: 2009Q4

REPORT INFORMATION
  Report Type: 
  Country: None (occurrence: None)
  Receive Date: 20091006
  Receipt Date: 20090601
  Transmission Date: 20100525
  Serious: No
  Sender: FDA-Public Use
  Company Number: US-BRISTOL-MYERS SQUIBB COMPANY-14649164

PATIENT
  Age: 73 Year
  Sex: Female

DRUGS (1)
  1. AVAPRO [Suspect]
     Indication: HYPERTENSION
     Dosage: 150MG(3-4 YEARS) DOSE INCREASED TO 300MG(2X150MG) IN MID APRIL FOR 2-3 WEEKS THEN TAKEN 150MG

REACTIONS (2)
  - BLOOD PRESSURE DECREASED [None]
  - MALAISE [None]
